FAERS Safety Report 10092218 (Version 2)
Quarter: 2014Q2

REPORT INFORMATION
  Report Type: Spontaneous
  Country: US (occurrence: US)
  Receive Date: 20140421
  Receipt Date: 20140421
  Transmission Date: 20141212
  Serious: No
  Sender: FDA-Public Use
  Company Number: US-SANOFI-AVENTIS-2013SA022525

PATIENT
  Age: 88 Year
  Sex: Female
  Weight: 120 kg

DRUGS (1)
  1. ALLEGRA [Suspect]
     Route: 048

REACTIONS (6)
  - Cough [Unknown]
  - Feeling abnormal [Unknown]
  - Asthenopia [Unknown]
  - Adverse event [Unknown]
  - Rhinorrhoea [Unknown]
  - Drug hypersensitivity [Unknown]
